FAERS Safety Report 16776216 (Version 2)
Quarter: 2020Q1

REPORT INFORMATION
  Report Type: Spontaneous
  Country: CN (occurrence: CN)
  Receive Date: 20190905
  Receipt Date: 20200115
  Transmission Date: 20200409
  Serious: Yes (Hospitalization, Other)
  Sender: FDA-Public Use
  Company Number: CN-GILEAD-2019-0426302

PATIENT
  Age: 63 Year
  Sex: Male

DRUGS (2)
  1. EPCLUSA [Suspect]
     Active Substance: SOFOSBUVIR\VELPATASVIR
     Indication: CHRONIC HEPATITIS C
     Dosage: UNK
     Route: 065
     Dates: start: 20190430, end: 20190725
  2. ENTECAVIR. [Concomitant]
     Active Substance: ENTECAVIR

REACTIONS (4)
  - Drug ineffective [Not Recovered/Not Resolved]
  - Hepatitis C virus test positive [Not Recovered/Not Resolved]
  - Hepatitis C [Not Recovered/Not Resolved]
  - Hepatitis C RNA increased [Not Recovered/Not Resolved]

NARRATIVE: CASE EVENT DATE: 20190901
